FAERS Safety Report 20142604 (Version 3)
Quarter: 2022Q2

REPORT INFORMATION
  Report Type: Spontaneous
  Country: US (occurrence: None)
  Receive Date: 20211202
  Receipt Date: 20220517
  Transmission Date: 20220721
  Serious: No
  Sender: FDA-Public Use
  Company Number: US-ROCHE-2930746

PATIENT
  Age: 33 Year
  Sex: Male
  Weight: 54.480 kg

DRUGS (6)
  1. EVRYSDI [Suspect]
     Active Substance: RISDIPLAM
     Indication: Spinal muscular atrophy
     Route: 065
     Dates: start: 20201106
  2. EVRYSDI [Suspect]
     Active Substance: RISDIPLAM
  3. EVRYSDI [Suspect]
     Active Substance: RISDIPLAM
  4. EVRYSDI [Suspect]
     Active Substance: RISDIPLAM
     Indication: Spinal muscular atrophy
  5. EVRYSDI [Suspect]
     Active Substance: RISDIPLAM
  6. EVRYSDI [Suspect]
     Active Substance: RISDIPLAM

REACTIONS (4)
  - Drug ineffective [Unknown]
  - Product dose omission issue [Unknown]
  - No adverse event [Unknown]
  - Product complaint [Unknown]

NARRATIVE: CASE EVENT DATE: 20210701
